FAERS Safety Report 10338985 (Version 1)
Quarter: 2014Q3

REPORT INFORMATION
  Report Type: Report from Study
  Country: KR (occurrence: KR)
  Receive Date: 20140724
  Receipt Date: 20140724
  Transmission Date: 20150326
  Serious: Yes (Hospitalization)
  Sender: FDA-Public Use
  Company Number: KR-OTSUKA-JP-2014-15644

PATIENT
  Age: 55 Year
  Sex: Female

DRUGS (12)
  1. TASNA [Concomitant]
     Dosage: UNK
     Dates: start: 20111207
  2. GASMOTIN [Concomitant]
     Active Substance: MOSAPRIDE CITRATE
     Dosage: UNK
     Dates: start: 20111207
  3. BLINDED CILOSTAZOL [Suspect]
     Active Substance: CILOSTAZOL
     Indication: CEREBRAL INFARCTION
     Dosage: UNK
     Route: 048
     Dates: start: 20111109, end: 20111206
  4. TORSEMIDE. [Concomitant]
     Active Substance: TORSEMIDE
     Dosage: UNK
     Dates: start: 20111008
  5. BLINDED ASPIRIN [Suspect]
     Active Substance: ASPIRIN
     Indication: CEREBRAL INFARCTION
     Dosage: UNK
     Route: 048
     Dates: start: 20111109, end: 20111206
  6. DILATREND [Concomitant]
     Active Substance: CARVEDILOL
     Dosage: UNK
     Dates: start: 20111004
  7. NORVASC [Concomitant]
     Active Substance: AMLODIPINE BESYLATE
     Dosage: UNK
     Dates: start: 20111019
  8. KALIMATE [Concomitant]
     Active Substance: POLYSTYRENE SULFONIC ACID
     Dosage: UNK
     Route: 048
     Dates: start: 20111108
  9. BLINDED PROBUCOL [Suspect]
     Active Substance: PROBUCOL
     Indication: CEREBRAL INFARCTION
     Dosage: UNK
     Route: 048
     Dates: start: 20111109, end: 20111206
  10. LORELCO [Suspect]
     Active Substance: PROBUCOL
     Indication: CEREBRAL INFARCTION
     Dosage: 250 MG MILLIGRAM(S), BID
     Route: 048
     Dates: start: 20111109, end: 20111206
  11. PLACEBO [Suspect]
     Active Substance: UNSPECIFIED INGREDIENT
     Indication: CEREBRAL INFARCTION
     Dosage: UNK
     Route: 048
     Dates: start: 20111109, end: 20111206
  12. LIPITOR [Concomitant]
     Active Substance: ATORVASTATIN CALCIUM
     Dosage: UNK
     Dates: start: 20110930

REACTIONS (2)
  - Condition aggravated [Recovered/Resolved]
  - Azotaemia [Recovered/Resolved]

NARRATIVE: CASE EVENT DATE: 20111206
